FAERS Safety Report 8272726-3 (Version None)
Quarter: 2012Q2

REPORT INFORMATION
  Report Type: 
  Country: None (occurrence: None)
  Receive Date: 20120411
  Receipt Date: 20120323
  Transmission Date: 20120825
  Serious: Yes (Death, Life-Threatening, Disabling, Other)
  Sender: FDA-Public Use
  Company Number: US-BAXTER-2012BAX000504

PATIENT
  Sex: Female

DRUGS (2)
  1. TISSEEL VH [Suspect]
  2. TISSEEL VH [Suspect]
     Route: 061
     Dates: start: 20120216, end: 20120216

REACTIONS (5)
  - CEREBRAL THROMBOSIS [None]
  - VOMITING [None]
  - DEHYDRATION [None]
  - NAUSEA [None]
  - OBESITY [None]
